FAERS Safety Report 5580098-8 (Version None)
Quarter: 2007Q4

REPORT INFORMATION
  Report Type: 
  Country: None (occurrence: None)
  Receive Date: 20071227
  Receipt Date: 20071227
  Transmission Date: 20080405
  Serious: Yes (Life-Threatening, Hospitalization, Disabling)
  Sender: FDA-Public Use
  Company Number: None

PATIENT
  Age: 47 Year
  Sex: Female
  Weight: 54.4316 kg

DRUGS (2)
  1. PREMPRO [Suspect]
     Indication: HOT FLUSH
     Dosage: .625 MG  ONCE DAILY  PO
     Route: 048
     Dates: start: 20050706, end: 20060831
  2. PREMPRO [Suspect]
     Indication: MENOPAUSAL SYMPTOMS
     Dosage: .625 MG  ONCE DAILY  PO
     Route: 048
     Dates: start: 20050706, end: 20060831

REACTIONS (1)
  - BREAST CANCER STAGE III [None]
